FAERS Safety Report 15156859 (Version 1)
Quarter: 2018Q3

REPORT INFORMATION
  Report Type: Spontaneous
  Country: US (occurrence: US)
  Receive Date: 20180718
  Receipt Date: 20180718
  Transmission Date: 20181010
  Serious: No
  Sender: FDA-Public Use
  Company Number: US-ELI_LILLY_AND_COMPANY-US201806013120

PATIENT
  Sex: Female

DRUGS (12)
  1. HUMULIN R U?500 [Suspect]
     Active Substance: INSULIN HUMAN
     Indication: DIABETES MELLITUS
     Dosage: 140 U, EACH MORNING
     Route: 058
  2. HUMULIN R U?500 [Suspect]
     Active Substance: INSULIN HUMAN
     Dosage: 60 U, EACH EVENING (DINNER)
     Route: 058
  3. HUMULIN R U?500 [Suspect]
     Active Substance: INSULIN HUMAN
     Dosage: 65 U, DAILY (LUNCHTIME)
     Route: 058
  4. HUMULIN R U?500 [Suspect]
     Active Substance: INSULIN HUMAN
     Dosage: 140 U, EACH MORNING
     Route: 058
  5. HUMULIN R U?500 [Suspect]
     Active Substance: INSULIN HUMAN
     Dosage: 140 U, EACH MORNING
     Route: 058
  6. HUMULIN R U?500 [Suspect]
     Active Substance: INSULIN HUMAN
     Dosage: 65 U, DAILY (LUNCHTIME)
     Route: 058
  7. HUMULIN R U?500 [Suspect]
     Active Substance: INSULIN HUMAN
     Dosage: 60 U, EACH EVENING (DINNER)
     Route: 058
  8. HUMULIN R U?500 [Suspect]
     Active Substance: INSULIN HUMAN
     Dosage: 60 U, EACH EVENING (DINNER)
     Route: 058
  9. HUMULIN R U?500 [Suspect]
     Active Substance: INSULIN HUMAN
     Dosage: 65 U, DAILY (LUNCHTIME)
     Route: 058
  10. HUMULIN R U?500 [Suspect]
     Active Substance: INSULIN HUMAN
     Dosage: 60 U, EACH EVENING (DINNER)
     Route: 058
  11. HUMULIN R U?500 [Suspect]
     Active Substance: INSULIN HUMAN
     Dosage: 65 U, DAILY (LUNCHTIME)
     Route: 058
  12. HUMULIN R U?500 [Suspect]
     Active Substance: INSULIN HUMAN
     Dosage: 140 U, EACH MORNING
     Route: 058

REACTIONS (3)
  - Hyperglycaemia [Unknown]
  - Incorrect drug administration duration [Unknown]
  - Accidental underdose [Recovering/Resolving]
